FAERS Safety Report 4889167-9 (Version None)
Quarter: 2005Q4

REPORT INFORMATION
  Report Type: 
  Country: None (occurrence: None)
  Receive Date: 20051215
  Receipt Date: 20041109
  Transmission Date: 20060501
  Serious: Yes (Other)
  Sender: FDA-Public Use
  Company Number: 2004104683

PATIENT
  Sex: Female

DRUGS (18)
  1. BEXTRA [Suspect]
     Indication: ILL-DEFINED DISORDER
     Dosage: 10 MG, 1 IN 2 D
  2. CALAMINE/CAMPHOR/DIPHENHYDRAMINE (CALAMINE, CAMPHOR, DIPHENHYDRAMINE) [Concomitant]
  3. LEVOTHYROXINE SODIUM [Concomitant]
  4. VALSARTAN [Concomitant]
  5. HYDROXYCHLOROQUINE PHOSPHATE (HYDROXYCHLOROQUINE PHOSPHATE) [Concomitant]
  6. METHOREXATE (METHOTREXATE) [Concomitant]
  7. CLOPIDOGREL BISULFATE [Concomitant]
  8. TEMAZEPAM [Concomitant]
  9. PANTOPRAZOLE SODIUM [Concomitant]
  10. RISEDRONATE SODIUM (RISEDRONATE SODIUM) [Concomitant]
  11. CLONAZEPAM [Concomitant]
  12. DESLORATADINE (DESLORATADINE) [Concomitant]
  13. HYDROCHLOROTHIAZIDE [Concomitant]
  14. PAROXETINE HCL [Concomitant]
  15. ASCORBIC ACID [Concomitant]
  16. PRAVASTATIN [Concomitant]
  17. AZELASTINE HYDROCHLORIDE (AZELASTINE HYDROCHLORIDE) [Concomitant]
  18. GLUCOSAMINE (GLUCOSAMINE) [Concomitant]

REACTIONS (2)
  - BLOOD CREATININE INCREASED [None]
  - MYOCARDIAL INFARCTION [None]
